FAERS Safety Report 8792247 (Version 1)
Quarter: 2012Q4

REPORT INFORMATION
  Report Type: 
  Country: US (occurrence: US)
  Receive Date: 20120918
  Receipt Date: 20120918
  Transmission Date: 20130627
  Serious: No
  Sender: FDA-Public Use
  Company Number: US-VERTEX PHARMACEUTICAL INC.-AE-2012-010146

PATIENT
  Sex: Female
  Weight: 66 kg

DRUGS (6)
  1. VX-950 [Suspect]
     Indication: HEPATITIS C
     Dosage: 750 mg, tid
     Route: 048
     Dates: start: 20120404
  2. PEGASYS [Concomitant]
     Indication: HEPATITIS C
     Dosage: 180 ?g, UNK
     Route: 058
     Dates: start: 20120404
  3. RIBASPHERE [Concomitant]
     Indication: HEPATITIS C
     Dosage: 400 mg, bid
     Route: 048
     Dates: start: 20120404
  4. RIBASPHERE [Concomitant]
     Dosage: 200 mg, bid
     Route: 048
  5. RIBASPHERE [Concomitant]
     Dosage: 400 mg, bid
     Route: 048
     Dates: start: 20120702
  6. TRAZODONE [Concomitant]
     Dosage: 50 mg, UNK

REACTIONS (5)
  - Chest pain [Unknown]
  - Dyspnoea [Unknown]
  - Dry skin [Unknown]
  - Alopecia [Unknown]
  - Haemoglobin decreased [Unknown]
